FAERS Safety Report 24291240 (Version 1)
Quarter: 2024Q3

REPORT INFORMATION
  Report Type: Spontaneous
  Country: US (occurrence: None)
  Receive Date: 20240906
  Receipt Date: 20240906
  Transmission Date: 20241017
  Serious: No
  Sender: DOMPE FARMACEUTICI
  Company Number: US-FARMAPROD-202308-2340

PATIENT
  Age: 55 Year
  Sex: Female

DRUGS (24)
  1. OXERVATE [Suspect]
     Active Substance: CENEGERMIN-BKBJ
     Indication: Neurotrophic keratopathy
     Route: 047
     Dates: start: 20230803
  2. OXERVATE [Suspect]
     Active Substance: CENEGERMIN-BKBJ
  3. OXERVATE [Suspect]
     Active Substance: CENEGERMIN-BKBJ
  4. ROSUVASTATIN CALCIUM [Concomitant]
     Active Substance: ROSUVASTATIN CALCIUM
  5. NEXIUM [Concomitant]
     Active Substance: ESOMEPRAZOLE MAGNESIUM
  6. ASPIRIN [Concomitant]
     Active Substance: ASPIRIN
  7. COLLAGEN [Concomitant]
     Active Substance: COLLAGEN
     Dosage: 125-740 MG
  8. CHONDROITIN SULFATE A\GLUCOSAMINE [Concomitant]
     Active Substance: CHONDROITIN SULFATE A\GLUCOSAMINE
     Dosage: 1500 MG-400
  9. CEQUA [Concomitant]
     Active Substance: CYCLOSPORINE
  10. TRULICITY [Concomitant]
     Active Substance: DULAGLUTIDE
     Dosage: 0.75 MG / 0.5 PEN INJECTOR
  11. PRIMIDONE [Concomitant]
     Active Substance: PRIMIDONE
  12. ADDERALL [Concomitant]
     Active Substance: AMPHETAMINE ASPARTATE\AMPHETAMINE SULFATE\DEXTROAMPHETAMINE SACCHARATE\DEXTROAMPHETAMINE SULFATE
  13. CLONAZEPAM [Concomitant]
     Active Substance: CLONAZEPAM
     Dosage: RAPID DISSOLVE
  14. NOVOLOG [Concomitant]
     Active Substance: INSULIN ASPART
  15. BASAGLAR TEMPO PEN [Concomitant]
     Active Substance: INSULIN GLARGINE
  16. GABAPENTIN [Concomitant]
     Active Substance: GABAPENTIN
  17. HYDROCHLOROTHIAZIDE\VALSARTAN [Concomitant]
     Active Substance: HYDROCHLOROTHIAZIDE\VALSARTAN
  18. ESTRADIOL [Concomitant]
     Active Substance: ESTRADIOL
  19. ROPINIROLE [Concomitant]
     Active Substance: ROPINIROLE
     Dosage: 24 HOURS
  20. LEVO-T [Concomitant]
     Active Substance: LEVOTHYROXINE SODIUM
  21. ARIPIPRAZOLE [Concomitant]
     Active Substance: ARIPIPRAZOLE
  22. BUPROPION HYDROCHLORIDE [Concomitant]
     Active Substance: BUPROPION HYDROCHLORIDE
     Dosage: FOR 12 HOURS
  23. VIIBRYD [Concomitant]
     Active Substance: VILAZODONE HYDROCHLORIDE
  24. ABILIFY [Concomitant]
     Active Substance: ARIPIPRAZOLE

REACTIONS (4)
  - Product use issue [Unknown]
  - Eye pain [Recovered/Resolved]
  - Eye discharge [Recovering/Resolving]
  - Psoriasis [Unknown]

NARRATIVE: CASE EVENT DATE: 20230801
